FAERS Safety Report 6860254-9 (Version None)
Quarter: 2010Q3

REPORT INFORMATION
  Report Type: 
  Country: None (occurrence: None)
  Receive Date: 20100720
  Receipt Date: 20100707
  Transmission Date: 20110219
  Serious: Yes (Other)
  Sender: FDA-Public Use
  Company Number: PHHY2010CA03473

PATIENT
  Sex: Female

DRUGS (12)
  1. EXJADE [Suspect]
     Indication: MYELODYSPLASTIC SYNDROME
     Dosage: 2000 MG, QD
     Route: 048
     Dates: start: 20100125
  2. EXJADE [Suspect]
     Dosage: 1000 MG, BID
     Route: 048
     Dates: start: 20100125
  3. EXJADE [Suspect]
     Dosage: 1000 MG/DAY
     Route: 048
  4. EXJADE [Suspect]
     Dosage: 1000 MG, QD
     Route: 048
     Dates: start: 20100125, end: 20100427
  5. EXJADE [Suspect]
     Dosage: 1000 MG DAILY
     Route: 048
  6. EXJADE [Suspect]
     Dosage: 500 MG, BID
  7. LEVOTHYROXINE SODIUM [Concomitant]
     Dosage: 0.1 MG, QD
     Route: 048
     Dates: start: 19680101
  8. CALCIUM [Concomitant]
     Dosage: 1500 MG, UNK
  9. VITAMIN D [Concomitant]
  10. CENTRUM [Concomitant]
  11. FLAXSEED OIL [Concomitant]
  12. GLUCOSAMINE [Concomitant]

REACTIONS (24)
  - ANXIETY [None]
  - BACK PAIN [None]
  - COUGH [None]
  - DIZZINESS [None]
  - DRY EYE [None]
  - EYE DISORDER [None]
  - FATIGUE [None]
  - FEELING ABNORMAL [None]
  - INFLUENZA [None]
  - MUSCULOSKELETAL DISCOMFORT [None]
  - MUSCULOSKELETAL PAIN [None]
  - MUSCULOSKELETAL STIFFNESS [None]
  - MYALGIA [None]
  - NECK PAIN [None]
  - OROPHARYNGEAL PAIN [None]
  - PAIN [None]
  - POLLAKIURIA [None]
  - PRURITUS [None]
  - PYREXIA [None]
  - RASH [None]
  - RHINORRHOEA [None]
  - SCLERAL DISCOLOURATION [None]
  - URTICARIA [None]
  - VISION BLURRED [None]
